FAERS Safety Report 7460295-7 (Version None)
Quarter: 2011Q2

REPORT INFORMATION
  Report Type: 
  Country: None (occurrence: None)
  Receive Date: 20110505
  Receipt Date: 20110421
  Transmission Date: 20111010
  Serious: Yes (Other)
  Sender: FDA-Public Use
  Company Number: US-JNJFOC-20110412071

PATIENT
  Age: 63 Year
  Sex: Female
  Weight: 71.67 kg

DRUGS (7)
  1. LISTERINE TOTAL CARE PLUS WHITENING [Suspect]
     Indication: DENTAL CARE
     Route: 048
  2. SINGULAIR [Concomitant]
     Indication: MULTIPLE ALLERGIES
     Route: 065
  3. PHENOBARBITAL [Concomitant]
     Indication: CONVULSION
     Route: 065
  4. ALLEGRA [Concomitant]
     Indication: MULTIPLE ALLERGIES
     Route: 065
  5. TRAVATAN [Concomitant]
     Indication: GLAUCOMA
     Route: 065
  6. TIMOLOL [Concomitant]
     Indication: GLAUCOMA
     Route: 065
  7. HYDROCHLOROTHIAZIDE [Concomitant]
     Indication: HYPERTENSION
     Route: 065

REACTIONS (4)
  - ORAL DISCOMFORT [None]
  - MOUTH ULCERATION [None]
  - OROPHARYNGEAL BLISTERING [None]
  - ORAL MUCOSAL ERYTHEMA [None]
